FAERS Safety Report 11692969 (Version 1)
Quarter: 2015Q4

REPORT INFORMATION
  Report Type: Spontaneous
  Country: US (occurrence: None)
  Receive Date: 20151102
  Receipt Date: 20151102
  Transmission Date: 20160304
  Serious: No
  Sender: FDA-Public Use
  Company Number: None

PATIENT
  Sex: Female

DRUGS (2)
  1. HUMIRA [Suspect]
     Active Substance: ADALIMUMAB
     Indication: RHEUMATOID ARTHRITIS
     Route: 058
     Dates: start: 20150120
  2. HUMIRA [Suspect]
     Active Substance: ADALIMUMAB
     Indication: PATHOLOGICAL FRACTURE
     Route: 058
     Dates: start: 20150120

REACTIONS (1)
  - Haematochezia [None]
